FAERS Safety Report 9418711 (Version 6)
Quarter: 2013Q4

REPORT INFORMATION
  Report Type: Spontaneous
  Country: FR (occurrence: FR)
  Receive Date: 20130725
  Receipt Date: 20131015
  Transmission Date: 20140711
  Serious: Yes (Life-Threatening)
  Sender: FDA-Public Use
  Company Number: FR-ROCHE-1249842

PATIENT
  Age: 58 Year
  Sex: Male
  Weight: 98 kg

DRUGS (6)
  1. ROACTEMRA [Suspect]
     Indication: JUVENILE IDIOPATHIC ARTHRITIS
     Route: 042
  2. ENBREL [Suspect]
     Indication: JUVENILE IDIOPATHIC ARTHRITIS
     Route: 058
     Dates: start: 2013
  3. MOPRAL (FRANCE) [Concomitant]
     Route: 048
  4. SERETIDE [Concomitant]
     Dosage: 1 MG IN MORNING AND EVENING, INHALATION.
     Route: 050
  5. SERETIDE [Concomitant]
     Dosage: 500MCG/ 50 MCG, ONE DOSE IN MORNING AND 1 DOSE IN EVENING
     Route: 065
  6. AMLODIPINE [Concomitant]
     Dosage: ONCE IN THE MORNING
     Route: 048

REACTIONS (3)
  - Septic shock [Recovered/Resolved]
  - Hepatocellular injury [Recovered/Resolved]
  - Cholestasis [Recovered/Resolved]
